FAERS Safety Report 5738121-3 (Version None)
Quarter: 2008Q2

REPORT INFORMATION
  Report Type: 
  Country: None (occurrence: None)
  Receive Date: 20080514
  Receipt Date: 20080505
  Transmission Date: 20081010
  Serious: Yes (Other)
  Sender: FDA-Public Use
  Company Number: CA-AMGEN-QUU272562

PATIENT

DRUGS (2)
  1. ENBREL [Suspect]
     Indication: DRUG USE FOR UNKNOWN INDICATION
  2. METHOTREXATE [Concomitant]

REACTIONS (4)
  - CRYPTOGENIC ORGANISING PNEUMONIA [None]
  - LIVER DISORDER [None]
  - RENAL FAILURE [None]
  - RESPIRATORY TRACT INFECTION [None]
